FAERS Safety Report 14499901 (Version 1)
Quarter: 2018Q1

REPORT INFORMATION
  Report Type: Spontaneous
  Country: US (occurrence: US)
  Receive Date: 20180207
  Receipt Date: 20180207
  Transmission Date: 20180509
  Serious: No
  Sender: FDA-Public Use
  Company Number: US-ALLERGAN-1717480US

PATIENT
  Sex: Female

DRUGS (1)
  1. GENERESS FE [Suspect]
     Active Substance: ETHINYL ESTRADIOL\FERROUS FUMARATE\NORETHINDRONE
     Indication: CONTRACEPTION
     Dosage: 1 PILL, DAILY
     Route: 048

REACTIONS (2)
  - Drug dose omission [Unknown]
  - Mood altered [Recovered/Resolved]
